FAERS Safety Report 9799404 (Version 1)
Quarter: 2014Q1

REPORT INFORMATION
  Report Type: Spontaneous
  Country: US (occurrence: None)
  Receive Date: 20140103
  Receipt Date: 20140103
  Transmission Date: 20141002
  Serious: No
  Sender: FDA-Public Use
  Company Number: None

PATIENT
  Age: 29 Year
  Sex: Female
  Weight: 54.43 kg

DRUGS (1)
  1. BENZACLIN GEL. GENERIC [Suspect]
     Indication: ACNE
     Dosage: USED 2-3 DAYS
     Route: 061
     Dates: start: 2012

REACTIONS (3)
  - Blister [None]
  - Pruritus [None]
  - Product substitution issue [None]
